FAERS Safety Report 5556100-6 (Version None)
Quarter: 2007Q4

REPORT INFORMATION
  Report Type: 
  Country: None (occurrence: None)
  Receive Date: 20071213
  Receipt Date: 20071206
  Transmission Date: 20080405
  Serious: Yes (Hospitalization)
  Sender: FDA-Public Use
  Company Number: PHFR2007GB03562

PATIENT
  Age: 50 Year
  Sex: Female
  Weight: 67 kg

DRUGS (3)
  1. ZOMETA [Suspect]
     Indication: BREAST CANCER METASTATIC
     Dosage: 4 MG
     Route: 042
     Dates: start: 20070928, end: 20071121
  2. HERCEPTIN [Concomitant]
     Indication: BREAST CANCER
     Dosage: 420 NG
     Route: 042
     Dates: start: 20060908
  3. TAXOTERE [Concomitant]
     Indication: BREAST CANCER
     Dosage: 175 MG
     Route: 042
     Dates: start: 20070928

REACTIONS (1)
  - SUPRAVENTRICULAR TACHYCARDIA [None]
